FAERS Safety Report 16804044 (Version 1)
Quarter: 2019Q3

REPORT INFORMATION
  Report Type: Spontaneous
  Country: CA (occurrence: CA)
  Receive Date: 20190913
  Receipt Date: 20190913
  Transmission Date: 20191005
  Serious: No
  Sender: FDA-Public Use
  Company Number: CA-DRREDDYS-USA/CAN/19/0114092

PATIENT
  Sex: Female

DRUGS (1)
  1. ZOLEDRONIC ACID INJECTION, 5 MG (BASE)/100 ML [Suspect]
     Active Substance: ZOLEDRONIC ACID
     Indication: OSTEOPOROSIS
     Dosage: 5 MG (BASE)/100 ML
     Route: 051
     Dates: start: 20180716

REACTIONS (2)
  - Nervousness [Unknown]
  - Feeling abnormal [Unknown]
